FAERS Safety Report 20808629 (Version 1)
Quarter: 2022Q2

REPORT INFORMATION
  Report Type: Spontaneous
  Country: US (occurrence: None)
  Receive Date: 20220509
  Receipt Date: 20220509
  Transmission Date: 20220720
  Serious: Yes (Disabling)
  Sender: FDA-Public Use
  Company Number: None

PATIENT
  Age: 30 Year
  Sex: Female
  Weight: 63 kg

DRUGS (4)
  1. TRIKAFTA [Suspect]
     Active Substance: ELEXACAFTOR\IVACAFTOR\TEZACAFTOR
     Indication: Cystic fibrosis
  2. VITAMIN D [Concomitant]
     Active Substance: VITAMIN D NOS
  3. HERBALS [Concomitant]
     Active Substance: HERBALS
  4. famotadine [Concomitant]

REACTIONS (4)
  - Anxiety [None]
  - Depression [None]
  - Rash [None]
  - Hepatic enzyme increased [None]
